FAERS Safety Report 9096460 (Version 3)
Quarter: 2013Q1

REPORT INFORMATION
  Report Type: Spontaneous
  Country: JP (occurrence: None)
  Receive Date: 20130124
  Receipt Date: 20130219
  Transmission Date: 20140127
  Serious: Yes (Other)
  Sender: FDA-Public Use
  Company Number: 2013S1000046

PATIENT
  Age: 55 Year
  Sex: Male
  Weight: 105 kg

DRUGS (7)
  1. LIVALO (PITAVASTATIN) TABLETS 2 MG [Suspect]
     Indication: HYPERCHOLESTEROLAEMIA
     Route: 048
     Dates: start: 20121207, end: 20130107
  2. ANAGLIPTIN (NO PREF. NAME) [Suspect]
     Indication: DIABETES MELLITUS
     Route: 048
     Dates: start: 20121207, end: 20130107
  3. GLIMEPIRIDE [Concomitant]
  4. NIFELANTERN CR [Concomitant]
  5. METOPLIC [Concomitant]
  6. FUROSEMIDE [Concomitant]
  7. GASPORT [Concomitant]

REACTIONS (4)
  - Stevens-Johnson syndrome [None]
  - Hepatic enzyme increased [None]
  - Stomatitis [None]
  - Hepatic steatosis [None]
